FAERS Safety Report 17457399 (Version 2)
Quarter: 2020Q2

REPORT INFORMATION
  Report Type: Report from Study
  Country: None (occurrence: CO)
  Receive Date: 20200225
  Receipt Date: 20200430
  Transmission Date: 20200713
  Serious: Yes (Disabling)
  Sender: FDA-Public Use
  Company Number: CO-ABBVIE-20K-036-3291550-00

PATIENT
  Age: 37 Year
  Sex: Female
  Weight: 70 kg

DRUGS (6)
  1. HUMIRA [Suspect]
     Active Substance: ADALIMUMAB
     Indication: HIDRADENITIS
     Route: 058
     Dates: start: 20190828, end: 20200211
  2. AMITRIPTYLINE [Concomitant]
     Active Substance: AMITRIPTYLINE
     Indication: ANXIETY
  3. AMITRIPTYLINE [Concomitant]
     Active Substance: AMITRIPTYLINE
     Indication: DEPRESSION
  4. PREGABALIN. [Concomitant]
     Active Substance: PREGABALIN
     Indication: PAIN
     Route: 048
  5. AMITRIPTYLINE [Concomitant]
     Active Substance: AMITRIPTYLINE
     Indication: SLEEP DISORDER
     Route: 048
     Dates: start: 201903, end: 20200215
  6. WINADEINE [Concomitant]
     Indication: PAIN
     Route: 048

REACTIONS (6)
  - Weight decreased [Recovering/Resolving]
  - Influenza [Recovering/Resolving]
  - Pain [Recovering/Resolving]
  - Muscular weakness [Recovering/Resolving]
  - Arthralgia [Recovering/Resolving]
  - Skin mass [Recovering/Resolving]

NARRATIVE: CASE EVENT DATE: 202001
